FAERS Safety Report 6657920-7 (Version None)
Quarter: 2010Q1

REPORT INFORMATION
  Report Type: 
  Country: None (occurrence: None)
  Receive Date: 20100330
  Receipt Date: 20100324
  Transmission Date: 20100710
  Serious: Yes (Hospitalization)
  Sender: FDA-Public Use
  Company Number: IT-ROCHE-692957

PATIENT
  Sex: Male

DRUGS (4)
  1. AVASTIN [Suspect]
     Route: 065
  2. FLUOROURACIL [Concomitant]
  3. FOLINIC ACID [Concomitant]
  4. OXALIPLATIN [Concomitant]

REACTIONS (1)
  - ILEITIS [None]
